FAERS Safety Report 8445136-3 (Version None)
Quarter: 2012Q2

REPORT INFORMATION
  Report Type: 
  Country: None (occurrence: None)
  Receive Date: 20120605
  Receipt Date: 20120522
  Transmission Date: 20120825
  Serious: Yes (Other)
  Sender: FDA-Public Use
  Company Number: DE-1192305

PATIENT
  Age: 58 Year
  Sex: Male

DRUGS (3)
  1. AZOPT [Suspect]
     Indication: INTRAOCULAR PRESSURE INCREASED
     Dosage: (OPHTHALMIC)
     Route: 047
  2. ALPHAGAN [Suspect]
     Indication: INTRAOCULAR PRESSURE INCREASED
     Dosage: (OPHTHALMIC)
     Route: 047
  3. XALATAN [Suspect]
     Indication: INTRAOCULAR PRESSURE INCREASED
     Dosage: (OPHTHALMIC)
     Route: 047

REACTIONS (3)
  - DEPRESSION [None]
  - DIZZINESS [None]
  - SCOTOMA [None]
